FAERS Safety Report 8141822-3 (Version None)
Quarter: 2012Q1

REPORT INFORMATION
  Report Type: 
  Country: None (occurrence: None)
  Receive Date: 20120216
  Receipt Date: 20120206
  Transmission Date: 20120608
  Serious: Yes (Hospitalization, Other)
  Sender: FDA-Public Use
  Company Number: CA-ELI_LILLY_AND_COMPANY-CA201202000400

PATIENT
  Age: 83 Year
  Sex: Female

DRUGS (9)
  1. GABAPENTIN [Concomitant]
  2. GASTROLYTE [Concomitant]
  3. ASPIRIN [Concomitant]
  4. CALCIUM [Concomitant]
  5. FORTEO [Suspect]
     Indication: OSTEOPOROSIS
     Dosage: 20 UG, QD
     Route: 058
     Dates: start: 20111120, end: 20120128
  6. VITAMIN D [Concomitant]
  7. EFFEXOR [Concomitant]
  8. FORTEO [Suspect]
     Dosage: 20 UG, QD
     Route: 058
  9. RAMIPRIL [Concomitant]

REACTIONS (11)
  - DIZZINESS [None]
  - PALPITATIONS [None]
  - HYPERHIDROSIS [None]
  - HOSPITALISATION [None]
  - INTESTINAL OBSTRUCTION [None]
  - FALL [None]
  - BONE PAIN [None]
  - STERNAL FRACTURE [None]
  - MUSCULOSKELETAL PAIN [None]
  - WEIGHT BEARING DIFFICULTY [None]
  - PAIN IN EXTREMITY [None]
